FAERS Safety Report 14659295 (Version 8)
Quarter: 2025Q2

REPORT INFORMATION
  Report Type: Spontaneous
  Country: FI (occurrence: FI)
  Receive Date: 20180320
  Receipt Date: 20250403
  Transmission Date: 20250717
  Serious: Yes (Death, Life-Threatening, Hospitalization, Disabling)
  Sender: BIOGEN
  Company Number: FI-BIOGEN-2018BI00543141

PATIENT
  Age: 39 Year
  Sex: Female
  Weight: 134 kg

DRUGS (36)
  1. TYSABRI [Suspect]
     Active Substance: NATALIZUMAB
     Indication: Relapsing-remitting multiple sclerosis
     Route: 050
     Dates: start: 20090507, end: 20100518
  2. TECFIDERA [Suspect]
     Active Substance: DIMETHYL FUMARATE
     Indication: Multiple sclerosis
     Route: 050
     Dates: start: 20180614
  3. TECFIDERA [Suspect]
     Active Substance: DIMETHYL FUMARATE
     Dosage: MAINTENANCE DOSE 480 MG DAILY
     Route: 050
     Dates: start: 201510, end: 201711
  4. BISOPROLOL FUMARATE [Concomitant]
     Active Substance: BISOPROLOL FUMARATE
     Indication: Hypertension
     Route: 050
     Dates: start: 20170228, end: 20200128
  5. CANDESARTAN [Concomitant]
     Active Substance: CANDESARTAN
     Indication: Hypertension
     Route: 050
     Dates: start: 20130101
  6. GABAPENTIN [Concomitant]
     Active Substance: GABAPENTIN
     Indication: Pain
     Route: 050
     Dates: start: 20180403
  7. GABAPENTIN [Concomitant]
     Active Substance: GABAPENTIN
     Route: 050
  8. CETIRIZINE HYDROCHLORIDE [Concomitant]
     Active Substance: CETIRIZINE HYDROCHLORIDE
     Indication: Hypersensitivity
     Route: 050
     Dates: start: 20160101, end: 20200129
  9. MIRTAZAPINE [Concomitant]
     Active Substance: MIRTAZAPINE
     Indication: Depression
     Route: 050
     Dates: start: 20121128, end: 20200128
  10. MIRTAZAPINE [Concomitant]
     Active Substance: MIRTAZAPINE
     Route: 050
  11. TIZANIDINE [Concomitant]
     Active Substance: TIZANIDINE
     Indication: Multiple sclerosis
     Dosage: 4MM ORAL THREE TIMES DAILY
     Route: 050
     Dates: start: 20160101
  12. TIZANIDINE [Concomitant]
     Active Substance: TIZANIDINE
     Dosage: 4MM ORAL THREE TIMES DAILY
     Route: 050
     Dates: start: 20191021, end: 20200129
  13. Venlafaixin orion [Concomitant]
     Indication: Depression
     Route: 050
     Dates: start: 20160101, end: 20190117
  14. Venlafaixin orion [Concomitant]
     Route: 050
     Dates: start: 20200117, end: 20200129
  15. LEVOTHYROXINE [Concomitant]
     Active Substance: LEVOTHYROXINE
     Indication: Hypothyroidism
     Route: 050
     Dates: start: 20120917, end: 20200128
  16. OXYCODONE [Concomitant]
     Active Substance: OXYCODONE
     Indication: Neoplasm malignant
     Dosage: 10 TO 30 MG
     Route: 050
     Dates: start: 20190111
  17. Zolt [Concomitant]
     Indication: Gastrointestinal disorder
     Route: 050
     Dates: start: 20171214, end: 20200129
  18. PANTOPRAZOLE [Concomitant]
     Active Substance: PANTOPRAZOLE
     Indication: Gastrointestinal disorder
     Route: 050
     Dates: start: 20190116, end: 20190117
  19. Panacod 500/30 mg [Concomitant]
     Indication: Pain
     Dosage: 1000/60 MG ORAL 3 TIMES DAILY
     Route: 050
     Dates: start: 20180614, end: 20190117
  20. INVANZ [Concomitant]
     Active Substance: ERTAPENEM SODIUM
     Indication: Pyelonephritis
     Route: 050
     Dates: start: 20190115
  21. CEFUROXIME [Concomitant]
     Active Substance: CEFUROXIME
     Indication: Pyelonephritis
     Route: 050
     Dates: start: 20190417
  22. PIVMECILLINAM HYDROCHLORIDE [Concomitant]
     Active Substance: PIVMECILLINAM HYDROCHLORIDE
     Indication: Pyelonephritis
     Route: 050
     Dates: start: 20190123
  23. NitrofurC [Concomitant]
     Indication: Urinary tract infection
     Dosage: 75/750MG ONCE DAILY
     Route: 050
     Dates: start: 20190124
  24. CANDESARTAN [Concomitant]
     Active Substance: CANDESARTAN
     Indication: Hypertension
     Route: 050
     Dates: start: 20190913, end: 20200128
  25. SPIRONOLACTONE [Concomitant]
     Active Substance: SPIRONOLACTONE
     Indication: Hypertension
     Route: 050
     Dates: start: 20200121, end: 20200128
  26. Trimopan (Trimethoprim) [Concomitant]
     Indication: Antibiotic prophylaxis
     Route: 050
     Dates: start: 20200128, end: 20200129
  27. AMLODIPINE BESYLATE [Concomitant]
     Active Substance: AMLODIPINE BESYLATE
     Indication: Hypertension
     Route: 050
     Dates: start: 20170228, end: 20200128
  28. Valavir (Valaciclovir hydrochloride) [Concomitant]
     Indication: Prophylaxis
     Route: 050
     Dates: start: 20190814, end: 20200128
  29. LYRICA [Concomitant]
     Active Substance: PREGABALIN
     Indication: Cancer pain
     Route: 050
     Dates: start: 20200107, end: 20200129
  30. OXAZEPAM [Concomitant]
     Active Substance: OXAZEPAM
     Indication: Depression
     Route: 050
     Dates: start: 20190927, end: 20200129
  31. Kalorid [Concomitant]
     Indication: Oedema
     Route: 050
     Dates: start: 20200125, end: 20200129
  32. FUROSEMIDE [Concomitant]
     Active Substance: FUROSEMIDE
     Indication: Oedema due to cardiac disease
     Dosage: 60+40MG/ORAL/DAILY EDEMA
     Route: 050
     Dates: start: 20200125, end: 20200129
  33. MIRTAZAPINE [Concomitant]
     Active Substance: MIRTAZAPINE
     Indication: Depression
     Route: 050
  34. MIRTAZAPINE [Concomitant]
     Active Substance: MIRTAZAPINE
     Route: 050
     Dates: start: 20121128, end: 20200128
  35. FERROUS GLYCINE SULFATE\FOLIC ACID [Concomitant]
     Active Substance: FERROUS GLYCINE SULFATE\FOLIC ACID
     Indication: Product used for unknown indication
     Route: 050
  36. PROPRANOLOL HYDROCHLORIDE [Concomitant]
     Active Substance: PROPRANOLOL HYDROCHLORIDE
     Indication: Product used for unknown indication
     Route: 050

REACTIONS (3)
  - Invasive ductal breast carcinoma [Fatal]
  - Breast cancer recurrent [Not Recovered/Not Resolved]
  - Metastases to lymph nodes [Recovered/Resolved with Sequelae]

NARRATIVE: CASE EVENT DATE: 20170901
